FAERS Safety Report 10286286 (Version 5)
Quarter: 2015Q1

REPORT INFORMATION
  Report Type: Report from Study
  Country: US (occurrence: None)
  Receive Date: 20140703
  Receipt Date: 20150227
  Transmission Date: 20150720
  Serious: Yes (Hospitalization)
  Sender: FDA-Public Use
  Company Number: 2014MPI00409

PATIENT
  Age: 32 Year
  Sex: Male
  Weight: 78.2 kg

DRUGS (4)
  1. BRENTUXIMAB VEDOTIN [Suspect]
     Active Substance: BRENTUXIMAB VEDOTIN
     Indication: HODGKIN^S DISEASE
     Dosage: 1.2MG/KG, Q14D, INTRAVENOUS
     Route: 042
     Dates: start: 20140128, end: 20140325
  2. DOXORUBICIN [Suspect]
     Active Substance: DOXORUBICIN
     Indication: HODGKIN^S DISEASE
     Dosage: 25 MG/M2, Q14D, INTRAVENOUS
     Route: 042
     Dates: start: 20140128, end: 20140325
  3. DACARBAZINE. [Suspect]
     Active Substance: DACARBAZINE
     Indication: HODGKIN^S DISEASE
     Route: 042
     Dates: start: 20140128, end: 20140325
  4. VINBLASTINE [Suspect]
     Active Substance: VINBLASTINE
     Indication: HODGKIN^S DISEASE
     Dosage: 6 MG/M2, Q14D, INTRAVENOUS
     Route: 042
     Dates: start: 20140128, end: 20140325

REACTIONS (30)
  - Herpes simplex [None]
  - Respiratory failure [None]
  - Blood lactate dehydrogenase increased [None]
  - Cellulitis [None]
  - Atelectasis [None]
  - Neutropenia [None]
  - Blood potassium increased [None]
  - Pneumocystis jirovecii pneumonia [None]
  - Haemoglobin decreased [None]
  - Normochromic normocytic anaemia [None]
  - Pulmonary oedema [None]
  - Pneumonitis [None]
  - Insomnia [None]
  - White blood cell count decreased [None]
  - Toxicity to various agents [None]
  - Organising pneumonia [None]
  - Fatigue [None]
  - Aspartate aminotransferase increased [None]
  - Hyponatraemia [None]
  - Haematocrit decreased [None]
  - Alanine aminotransferase increased [None]
  - Pulmonary alveolar haemorrhage [None]
  - Atypical pneumonia [None]
  - Acute respiratory distress syndrome [None]
  - Blood chloride decreased [None]
  - Blood glucose increased [None]
  - Pain in extremity [None]
  - Fluid overload [None]
  - Monocyte count decreased [None]
  - Pseudomonas test positive [None]

NARRATIVE: CASE EVENT DATE: 20140404
